FAERS Safety Report 9438583 (Version 1)
Quarter: 2013Q3

REPORT INFORMATION
  Report Type: Spontaneous
  Country: US (occurrence: US)
  Receive Date: 20130802
  Receipt Date: 20130802
  Transmission Date: 20140515
  Serious: Yes (Other)
  Sender: FDA-Public Use
  Company Number: US-BAYER-2013-090773

PATIENT
  Age: 87 Year
  Sex: Female
  Weight: 49 kg

DRUGS (4)
  1. PHILLIPS^ LAXATIVE DIETARY SUPPLEMENT [Suspect]
     Dosage: 3 DF, QD
     Route: 048
     Dates: start: 20130717
  2. PHILLIPS LITTLE PHILLIPS FRESH STRAWBERRY [Suspect]
     Indication: CONSTIPATION
     Dosage: 2 DF, OTHER
     Route: 048
     Dates: start: 2011
  3. PHILLIPS^ MILK OF MAGNESIA [Suspect]
     Indication: CONSTIPATION
     Dosage: 2 TBSP, OTHER
     Route: 048
  4. VITAMIN D [Concomitant]

REACTIONS (6)
  - Drug dependence [Not Recovered/Not Resolved]
  - Drug dependence [Not Recovered/Not Resolved]
  - Drug ineffective [None]
  - Therapeutic response delayed [None]
  - Abdominal pain [Recovered/Resolved]
  - Incorrect drug administration duration [None]
